FAERS Safety Report 10223035 (Version 2)
Quarter: 2014Q3

REPORT INFORMATION
  Report Type: Spontaneous
  Country: BR (occurrence: BR)
  Receive Date: 20140607
  Receipt Date: 20140812
  Transmission Date: 20150326
  Serious: No
  Sender: FDA-Public Use
  Company Number: PHHY2014BR069259

PATIENT
  Sex: Male
  Weight: 30 kg

DRUGS (1)
  1. RITALIN LA [Suspect]
     Active Substance: METHYLPHENIDATE HYDROCHLORIDE
     Indication: ATTENTION DEFICIT/HYPERACTIVITY DISORDER
     Dosage: 1 DF(1 CAPSULE) , DAILY (ONLY FROM MONDAY TO FRIDAY)
     Route: 048
     Dates: start: 20140525

REACTIONS (1)
  - Dysphagia [Recovering/Resolving]
